FAERS Safety Report 8317200-0 (Version None)
Quarter: 2012Q2

REPORT INFORMATION
  Report Type: 
  Country: None (occurrence: None)
  Receive Date: 20120427
  Receipt Date: 20120423
  Transmission Date: 20120825
  Serious: Yes (Other)
  Sender: FDA-Public Use
  Company Number: PHEH2012US003457

PATIENT
  Sex: Male
  Weight: 68 kg

DRUGS (1)
  1. GILENYA [Suspect]
     Indication: RELAPSING-REMITTING MULTIPLE SCLEROSIS
     Dosage: 0.5 MG, QD
     Route: 048
     Dates: start: 20110929

REACTIONS (8)
  - THROMBOCYTOPENIA [None]
  - BLOOD CHLORIDE INCREASED [None]
  - MONOCYTE PERCENTAGE INCREASED [None]
  - EOSINOPHIL PERCENTAGE INCREASED [None]
  - LEUKOPENIA [None]
  - NEUTROPHIL PERCENTAGE INCREASED [None]
  - LYMPHOCYTE COUNT DECREASED [None]
  - BLOOD UREA NITROGEN/CREATININE RATIO INCREASED [None]
